FAERS Safety Report 5941869-9 (Version None)
Quarter: 2008Q4

REPORT INFORMATION
  Report Type: 
  Country: None (occurrence: None)
  Receive Date: 20081031
  Receipt Date: 20081024
  Transmission Date: 20090506
  Serious: Yes (Hospitalization)
  Sender: FDA-Public Use
  Company Number: 2008BI026443

PATIENT
  Age: 44 Year
  Sex: Male

DRUGS (1)
  1. AVONEX [Suspect]
     Indication: MULTIPLE SCLEROSIS
     Dosage: IM, IM
     Route: 030
     Dates: start: 20080922

REACTIONS (7)
  - BLADDER DISORDER [None]
  - CHOKING [None]
  - FALL [None]
  - GASTROENTERITIS [None]
  - IMPAIRED GASTRIC EMPTYING [None]
  - MULTI-ORGAN FAILURE [None]
  - URINARY TRACT INFECTION [None]
